FAERS Safety Report 5086175-2 (Version None)
Quarter: 2006Q3

REPORT INFORMATION
  Report Type: 
  Country: None (occurrence: None)
  Receive Date: 20060818
  Receipt Date: 20060802
  Transmission Date: 20061208
  Serious: Yes (Other)
  Sender: FDA-Public Use
  Company Number: 2006098712

PATIENT
  Sex: Male

DRUGS (2)
  1. TOLTERODINE TARTRATE [Suspect]
     Indication: DRUG USE FOR UNKNOWN INDICATION
     Dosage: ORAL
     Route: 048
  2. NITROGLYCERIN [Concomitant]

REACTIONS (2)
  - ANGINA PECTORIS [None]
  - CONDITION AGGRAVATED [None]
